FAERS Safety Report 5308484-1 (Version None)
Quarter: 2007Q2

REPORT INFORMATION
  Report Type: 
  Country: None (occurrence: None)
  Receive Date: 20070424
  Receipt Date: 20070424
  Transmission Date: 20071010
  Serious: Yes (Life-Threatening)
  Sender: FDA-Public Use
  Company Number: None

PATIENT
  Sex: Female
  Weight: 104.3273 kg

DRUGS (2)
  1. OMNISCAN [Suspect]
     Indication: ABDOMINAL PAIN
     Dosage: 40 CC IV BOLUS
     Route: 040
  2. OMNISCAN [Suspect]
     Indication: DIAGNOSTIC PROCEDURE
     Dosage: 40 CC IV BOLUS
     Route: 040

REACTIONS (1)
  - NEPHROGENIC FIBROSING DERMOPATHY [None]
